FAERS Safety Report 6138819-1 (Version None)
Quarter: 2009Q1

REPORT INFORMATION
  Report Type: 
  Country: None (occurrence: None)
  Receive Date: 20090331
  Receipt Date: 20090325
  Transmission Date: 20090719
  Serious: No
  Sender: FDA-Public Use
  Company Number: US-B.I. PHARMACEUTICALS,INC./RIDGEFIELD-2009-BP-02773BP

PATIENT
  Sex: Male

DRUGS (6)
  1. SPIRIVA [Suspect]
     Indication: EMPHYSEMA
     Dosage: 18MCG
     Route: 055
     Dates: start: 20070101, end: 20081201
  2. SPIRIVA [Suspect]
     Indication: DYSPNOEA
  3. ZOCOR [Concomitant]
     Indication: PROPHYLAXIS
  4. DIOVAN [Concomitant]
     Indication: HYPERTENSION
  5. NORVASC [Concomitant]
     Indication: HYPERTENSION
  6. HYTRIN [Concomitant]
     Indication: HYPERTENSION

REACTIONS (3)
  - DRUG INEFFECTIVE [None]
  - HAEMOPTYSIS [None]
  - LUNG DISORDER [None]
